FAERS Safety Report 6302106-9 (Version None)
Quarter: 2009Q3

REPORT INFORMATION
  Report Type: 
  Country: None (occurrence: None)
  Receive Date: 20090807
  Receipt Date: 20090805
  Transmission Date: 20100115
  Serious: Yes (Other)
  Sender: FDA-Public Use
  Company Number: US-JNJCH-2009019364

PATIENT
  Age: 84 Year
  Sex: Male
  Weight: 79.4 kg

DRUGS (1)
  1. LISTERINE WHITENING PRE-BRUSH RINSE [Suspect]
     Indication: DENTAL CARE
     Dosage: TEXT:1 OZ. 2 X A DAY
     Route: 048

REACTIONS (3)
  - HIATUS HERNIA [None]
  - INCORRECT DOSE ADMINISTERED [None]
  - MEDICATION RESIDUE [None]
